FAERS Safety Report 15622225 (Version 1)
Quarter: 2018Q4

REPORT INFORMATION
  Report Type: Spontaneous
  Country: AR (occurrence: AR)
  Receive Date: 20181115
  Receipt Date: 20181115
  Transmission Date: 20190205
  Serious: Yes (Other)
  Sender: FDA-Public Use
  Company Number: AR-PFIZER INC-2018465087

PATIENT
  Age: 67 Year
  Sex: Female

DRUGS (1)
  1. IBRANCE [Suspect]
     Active Substance: PALBOCICLIB
     Indication: BREAST CANCER METASTATIC
     Dosage: 125 MG, CYCLIC (DAILY, 3X1, SCHEME)
     Dates: start: 20180810

REACTIONS (5)
  - Blindness [Unknown]
  - Rash [Unknown]
  - Cataract [Unknown]
  - Pain in extremity [Unknown]
  - Pain [Unknown]

NARRATIVE: CASE EVENT DATE: 2018
